FAERS Safety Report 4981759-1 (Version None)
Quarter: 2006Q2

REPORT INFORMATION
  Report Type: 
  Country: None (occurrence: None)
  Receive Date: 20060425
  Receipt Date: 20060309
  Transmission Date: 20061013
  Serious: Yes (Hospitalization)
  Sender: FDA-Public Use
  Company Number: AU-AVENTIS-200612269GDDC

PATIENT
  Age: 42 Year
  Sex: Female

DRUGS (5)
  1. ARAVA [Suspect]
     Route: 048
     Dates: start: 20020612
  2. METHOTREXATE [Concomitant]
     Indication: RHEUMATOID ARTHRITIS
     Route: 048
  3. CELEBREX [Concomitant]
     Indication: RHEUMATOID ARTHRITIS
     Route: 048
  4. PREDNISONE [Concomitant]
     Dosage: DOSE: UNK
  5. CONTRACEPTIVE PILL [Concomitant]
     Dosage: DOSE: UNK

REACTIONS (2)
  - DIARRHOEA [None]
  - MENORRHAGIA [None]
